FAERS Safety Report 25820100 (Version 3)
Quarter: 2025Q3

REPORT INFORMATION
  Report Type: Spontaneous
  Country: US (occurrence: US)
  Receive Date: 20250919
  Receipt Date: 20250926
  Transmission Date: 20251021
  Serious: Yes (Other)
  Sender: TEVA
  Company Number: US-TEVA-VS-3371911

PATIENT
  Age: 68 Year
  Sex: Female

DRUGS (5)
  1. CARBIDOPA AND LEVODOPA [Suspect]
     Active Substance: CARBIDOPA\LEVODOPA
     Indication: Movement disorder
     Route: 048
     Dates: start: 20250913, end: 202509
  2. COUMADIN [Concomitant]
     Active Substance: WARFARIN SODIUM
     Indication: Heart valve replacement
  3. AMITRIPTYLINE [Concomitant]
     Active Substance: AMITRIPTYLINE
     Indication: Pain
  4. KLONOPIN [Concomitant]
     Active Substance: CLONAZEPAM
     Indication: Sleep disorder
  5. XANAX [Concomitant]
     Active Substance: ALPRAZOLAM
     Indication: Sleep disorder

REACTIONS (8)
  - Neuropathy peripheral [Unknown]
  - Depression [Unknown]
  - Off label use [Unknown]
  - Malaise [Unknown]
  - Nervousness [Unknown]
  - Muscle spasms [Unknown]
  - Nerve injury [Unknown]
  - Product use in unapproved indication [Unknown]

NARRATIVE: CASE EVENT DATE: 20250901
